FAERS Safety Report 25951608 (Version 1)
Quarter: 2025Q4

REPORT INFORMATION
  Report Type: Report from Study
  Country: US (occurrence: US)
  Receive Date: 20251023
  Receipt Date: 20251023
  Transmission Date: 20260117
  Serious: Yes (Hospitalization)
  Sender: ESTEVE
  Company Number: US-ESTEVE-2025-04651

PATIENT
  Sex: Female

DRUGS (13)
  1. METOPIRONE [Suspect]
     Active Substance: METYRAPONE
     Indication: Cushing^s syndrome
     Dates: start: 20250725
  2. METOPIRONE [Suspect]
     Active Substance: METYRAPONE
  3. METOPROLOL [Concomitant]
     Active Substance: METOPROLOL
  4. A-HYDROCORT [Concomitant]
     Active Substance: HYDROCORTISONE SODIUM SUCCINATE
  5. PANTOPRAZOLE [Concomitant]
     Active Substance: PANTOPRAZOLE
  6. NYSTATIN [Concomitant]
     Active Substance: NYSTATIN
  7. MULTI VITAMI [Concomitant]
  8. METYROSINE [Concomitant]
     Active Substance: METYROSINE
  9. MAGNESIUM [Concomitant]
     Active Substance: MAGNESIUM
  10. ENOXAPARIN [Concomitant]
     Active Substance: ENOXAPARIN
  11. MINERALS\VITAMINS [Concomitant]
     Active Substance: MINERALS\VITAMINS
  12. ALDACTONE [Concomitant]
     Active Substance: SPIRONOLACTONE
  13. ACETAMINOPHEN [Concomitant]
     Active Substance: ACETAMINOPHEN

REACTIONS (9)
  - Dyspnoea [Not Recovered/Not Resolved]
  - Product dose omission issue [Recovered/Resolved]
  - Off label use [Unknown]
  - Vomiting [Unknown]
  - Nausea [Unknown]
  - Headache [Unknown]
  - Fatigue [Unknown]
  - Dizziness [Unknown]
  - Diarrhoea [Unknown]
